FAERS Safety Report 5014803-6 (Version None)
Quarter: 2006Q2

REPORT INFORMATION
  Report Type: 
  Country: None (occurrence: None)
  Receive Date: 20060424
  Receipt Date: 20050323
  Transmission Date: 20061013
  Serious: Yes (Disabling)
  Sender: FDA-Public Use
  Company Number: WAES 0503USA04208

PATIENT
  Age: 82 Year
  Sex: Female

DRUGS (8)
  1. SINGULAIR [Suspect]
     Indication: CHRONIC OBSTRUCTIVE PULMONARY DISEASE
     Dosage: 10 MG/HS/PO
     Route: 048
     Dates: start: 20030301
  2. ACIPHEX [Concomitant]
  3. COMBIVENT [Concomitant]
  4. COZAAR [Concomitant]
  5. LASIX [Concomitant]
  6. MIRCO K [Concomitant]
  7. [THERAPY UNSPECIFIED] [Concomitant]
  8. PREDNISONE TAB [Concomitant]

REACTIONS (2)
  - FATIGUE [None]
  - SOMNOLENCE [None]
